FAERS Safety Report 22062109 (Version 5)
Quarter: 2023Q2

REPORT INFORMATION
  Report Type: Spontaneous
  Country: US (occurrence: US)
  Receive Date: 20230304
  Receipt Date: 20230420
  Transmission Date: 20230722
  Serious: Yes (Other)
  Sender: FDA-Public Use
  Company Number: US-UNITED THERAPEUTICS-UNT-2022-030516

PATIENT
  Sex: Female
  Weight: 71.655 kg

DRUGS (18)
  1. REMODULIN [Suspect]
     Active Substance: TREPROSTINIL
     Indication: Pulmonary arterial hypertension
     Dosage: 0.005 ?G/KG (SELF-FILLED WITH 2.1 ML/CASSETTE AT A PUMP RATE OF 22 MCL/HR), CONTINUING
     Route: 058
     Dates: start: 20221207
  2. REMODULIN [Suspect]
     Active Substance: TREPROSTINIL
     Dosage: 0.0037 ?G/KG (SELF-FILLED WITH 1.7 ML/CASSETTE AT A PUMP RATE OF 16 MCL/HR), CONTINUING
     Route: 058
     Dates: start: 202212
  3. REMODULIN [Suspect]
     Active Substance: TREPROSTINIL
     Dosage: 0.013 ?G/KG (SELF-FILLED WITH 3 ML/CASSETTE AT A PUMP RATE OF 56 MCL/HR), CONTINUING
     Route: 058
  4. REMODULIN [Suspect]
     Active Substance: TREPROSTINIL
     Dosage: 0.030 ?G/KG (SELF-FILLED WITH 3 ML/CASSETTE AT A PUMP RATE OF 130 MCL/HR), CONTINUING
     Route: 058
  5. REMODULIN [Suspect]
     Active Substance: TREPROSTINIL
     Indication: Pulmonary arterial hypertension
     Dosage: 0.025 ?G/KG [SELF-FILL CASSETTE WITH 3 ML, RATE OF 43 MCL/HOUR], CONTINUING
     Route: 058
  6. REMODULIN [Suspect]
     Active Substance: TREPROSTINIL
     Dosage: 0.031 ?G/KG [SELF-FILL CASSETTE WITH 3 ML, RATE OF 54 MCL/HOUR], CONTINUING
     Route: 058
  7. REMODULIN [Suspect]
     Active Substance: TREPROSTINIL
     Dosage: UNK, CONTINUING
     Route: 058
  8. REMODULIN [Suspect]
     Active Substance: TREPROSTINIL
     Dosage: 0.033 ?G/KG [SELF-FILL CASSETTE WITH 3 ML, RATE OF 57 MCL/HOUR], CONTINUING
     Route: 058
  9. REMODULIN [Suspect]
     Active Substance: TREPROSTINIL
     Dosage: UNK, CONTINUING
     Route: 058
  10. REMODULIN [Suspect]
     Active Substance: TREPROSTINIL
     Indication: Pulmonary arterial hypertension
     Dosage: 0.039 ?G/KG (SELF-FILLED CASSETTE WITH 2.9 ML; AT A RATE OF 34 MCL/HOUR), CONTINUING
     Route: 058
  11. REMODULIN [Suspect]
     Active Substance: TREPROSTINIL
     Dosage: UNK, CONTINUING
     Route: 058
     Dates: end: 202303
  12. TYVASO [Suspect]
     Active Substance: TREPROSTINIL
     Indication: Pulmonary arterial hypertension
     Dosage: 102 ?G, QID
     Dates: start: 2022
  13. TYVASO [Suspect]
     Active Substance: TREPROSTINIL
     Dosage: 126 ?G, QID
     Dates: start: 2022
  14. TYVASO [Suspect]
     Active Substance: TREPROSTINIL
     Dosage: UNK
     Dates: start: 20210205, end: 20221207
  15. TYVASO [Suspect]
     Active Substance: TREPROSTINIL
     Dosage: UNK
     Dates: start: 201904, end: 201907
  16. TYVASO [Suspect]
     Active Substance: TREPROSTINIL
     Dosage: 18 ?G, QID
  17. TYVASO [Suspect]
     Active Substance: TREPROSTINIL
     Dosage: UNK
     Dates: start: 20230307
  18. ELIQUIS [Concomitant]
     Active Substance: APIXABAN
     Indication: Product used for unknown indication
     Dosage: UNK
     Route: 065

REACTIONS (13)
  - Syncope [Unknown]
  - Infusion site pain [Not Recovered/Not Resolved]
  - Dizziness [Unknown]
  - Headache [Unknown]
  - Infusion site swelling [Not Recovered/Not Resolved]
  - Infusion site haemorrhage [Not Recovered/Not Resolved]
  - Pain [Unknown]
  - Infusion site reaction [Unknown]
  - Mobility decreased [Unknown]
  - Cough [Unknown]
  - Drug dose titration not performed [Unknown]
  - Off label use [Recovered/Resolved]
  - Device intolerance [Unknown]

NARRATIVE: CASE EVENT DATE: 20220101
